FAERS Safety Report 8937024 (Version 1)
Quarter: 2012Q4

REPORT INFORMATION
  Report Type: 
  Country: US (occurrence: US)
  Receive Date: 20121130
  Receipt Date: 20121130
  Transmission Date: 20130627
  Serious: Yes (Hospitalization)
  Sender: FDA-Public Use
  Company Number: US-AMGEN-USASP2012076584

PATIENT
  Sex: Female

DRUGS (3)
  1. ENBREL [Suspect]
     Indication: RHEUMATOID ARTHRITIS
     Dosage: 50 mg, qwk
     Dates: start: 19980601, end: 20121122
  2. METHOTREXATE [Concomitant]
     Dosage: UNK
  3. HUMIRA [Concomitant]
     Dosage: UNK

REACTIONS (13)
  - Knee arthroplasty [Recovered/Resolved]
  - Rheumatoid arthritis [Not Recovered/Not Resolved]
  - Arthralgia [Not Recovered/Not Resolved]
  - Drug effect decreased [Not Recovered/Not Resolved]
  - Synovitis [Not Recovered/Not Resolved]
  - Hypoaesthesia [Not Recovered/Not Resolved]
  - Peripheral nerve lesion [Not Recovered/Not Resolved]
  - Meniscus injury [Recovered/Resolved]
  - Pain [Not Recovered/Not Resolved]
  - Weight bearing difficulty [Recovered/Resolved]
  - Limb deformity [Recovered/Resolved]
  - Osteoarthritis [Not Recovered/Not Resolved]
  - Paraesthesia [Not Recovered/Not Resolved]
